FAERS Safety Report 8058166-0 (Version None)
Quarter: 2012Q1

REPORT INFORMATION
  Report Type: 
  Country: None (occurrence: None)
  Receive Date: 20120112
  Receipt Date: 20120104
  Transmission Date: 20120608
  Serious: Yes (Hospitalization)
  Sender: FDA-Public Use
  Company Number: 2012SP000688

PATIENT
  Age: 58 Year
  Sex: Female

DRUGS (6)
  1. PLITICAN (ALIZAPRIDE HYDROCHLORIDE) [Suspect]
     Indication: PRODUCT USED FOR UNKNOWN INDICATION
     Dosage: IV
     Route: 042
     Dates: start: 20111017, end: 20111107
  2. DOMPERIDONE SANDOZ (DOMPERIDONE MALEATE) [Suspect]
     Indication: PRODUCT USED FOR UNKNOWN INDICATION
     Dosage: 1 DF; BID; PO
     Route: 048
     Dates: end: 20111112
  3. PANTOPRAZOLE [Suspect]
     Indication: PRODUCT USED FOR UNKNOWN INDICATION
     Dosage: 20 MG; PO
     Route: 048
     Dates: end: 20111112
  4. DESLORATADINE [Suspect]
     Indication: PRODUCT USED FOR UNKNOWN INDICATION
     Dates: start: 20111014, end: 20111030
  5. ONDANSETRON HYDROCHLORIDE [Suspect]
     Indication: PRODUCT USED FOR UNKNOWN INDICATION
     Dates: start: 20111017, end: 20111026
  6. EMEND [Suspect]
     Indication: PRODUCT USED FOR UNKNOWN INDICATION
     Dosage: PO
     Route: 048
     Dates: start: 20111017, end: 20111026

REACTIONS (11)
  - PYREXIA [None]
  - BLISTER [None]
  - ERYTHEMA [None]
  - ROSEOLOVIRUS TEST POSITIVE [None]
  - ASPARTATE AMINOTRANSFERASE INCREASED [None]
  - SKIN LESION [None]
  - OEDEMA PERIPHERAL [None]
  - ALANINE AMINOTRANSFERASE INCREASED [None]
  - RASH PRURITIC [None]
  - SKIN EXFOLIATION [None]
  - FACE OEDEMA [None]
